FAERS Safety Report 18639862 (Version 2)
Quarter: 2022Q1

REPORT INFORMATION
  Report Type: Report from Study
  Country: US (occurrence: US)
  Receive Date: 20201220
  Receipt Date: 20220113
  Transmission Date: 20220423
  Serious: Yes (Hospitalization)
  Sender: FDA-Public Use
  Company Number: US-REGENERON PHARMACEUTICALS, INC.-2020-93878

PATIENT

DRUGS (1)
  1. CASIRIVIMAB\IMDEVIMAB [Suspect]
     Active Substance: CASIRIVIMAB\IMDEVIMAB
     Indication: COVID-19
     Dosage: CASIRIVIMAB AND IMDEVIMAB COMBINATION THERAPY, 2.4 G INTRAVENOUSLY (IV) SINGLE DOSE.
     Route: 042
     Dates: start: 20201204, end: 20201204

REACTIONS (7)
  - Throat irritation [Unknown]
  - Increased upper airway secretion [Unknown]
  - Anxiety [Unknown]
  - Pain [Unknown]
  - Tachycardia [Unknown]
  - Tachypnoea [Unknown]
  - Feeling cold [Unknown]

NARRATIVE: CASE EVENT DATE: 20201204
